FAERS Safety Report 7286378-2 (Version None)
Quarter: 2011Q1

REPORT INFORMATION
  Report Type: 
  Country: None (occurrence: None)
  Receive Date: 20110128
  Receipt Date: 20101231
  Transmission Date: 20110831
  Serious: Yes (Death)
  Sender: FDA-Public Use
  Company Number: AUR-APL-2011-00138

PATIENT
  Age: 62 Year
  Sex: Male

DRUGS (10)
  1. SIMVASTATIN [Suspect]
     Dosage: - ORAL
     Route: 048
  2. ALBUTEROL [Suspect]
     Dosage: - ORAL
     Route: 048
  3. TRAMADOL HCL [Suspect]
     Dosage: - ORAL
     Route: 048
  4. VENLAFAXINE HCL [Suspect]
     Dosage: - ORAL
     Route: 048
  5. QUETIAPINE [Suspect]
     Dosage: - ORAL
     Route: 048
  6. DIAZEPAM [Suspect]
     Dosage: - ORAL
     Route: 048
  7. METHADONE [Suspect]
     Dosage: - ORAL
     Route: 048
  8. BUSPIRONE [Suspect]
     Dosage: - ORAL
     Route: 048
  9. FLUOXETINE [Suspect]
     Dosage: - ORAL
     Route: 048
  10. ZOLPIDEM [Suspect]
     Dosage: - ORAL
     Route: 048

REACTIONS (3)
  - CARDIAC ARREST [None]
  - POISONING [None]
  - RESPIRATORY ARREST [None]
